FAERS Safety Report 15539388 (Version 2)
Quarter: 2018Q4

REPORT INFORMATION
  Report Type: Spontaneous
  Country: US (occurrence: US)
  Receive Date: 20181022
  Receipt Date: 20181023
  Transmission Date: 20190205
  Serious: No
  Sender: FDA-Public Use
  Company Number: US-BAXTER-2018BAX025831

PATIENT
  Sex: Female

DRUGS (5)
  1. REGULAR INSULIN [Suspect]
     Active Substance: INSULIN NOS
     Indication: DIABETES MELLITUS
     Dosage: BEFORE STARTING THERAPY WITH PHOXILLUM
     Route: 065
  2. INSULIN ZINC [Suspect]
     Active Substance: INSULIN NOS
     Indication: DIABETES MELLITUS
     Dosage: BEFORE STARTING THERAPY WITH PHOXILLUM
     Route: 065
  3. PHOXILLUM BK4/2.5 [Suspect]
     Active Substance: CALCIUM CL\MAGNESIUM CL\POTASSIUM CL\SODIUM BICAR\SODIUM CL\SODIUM PHOSPHATE,DIB
     Indication: RENAL REPLACEMENT THERAPY
     Route: 010
     Dates: start: 20180906, end: 20180906
  4. PHOXILLUM BK4/2.5 [Suspect]
     Active Substance: CALCIUM CL\MAGNESIUM CL\POTASSIUM CL\SODIUM BICAR\SODIUM CL\SODIUM PHOSPHATE,DIB
     Indication: RENAL FAILURE
  5. REGULAR INSULIN [Suspect]
     Active Substance: INSULIN NOS
     Dosage: DOSE: 4 UNITS
     Route: 041
     Dates: start: 20180906

REACTIONS (1)
  - Blood glucose decreased [Recovered/Resolved]

NARRATIVE: CASE EVENT DATE: 20180906
